FAERS Safety Report 4818182-6 (Version None)
Quarter: 2005Q4

REPORT INFORMATION
  Report Type: 
  Country: None (occurrence: None)
  Receive Date: 20051101
  Receipt Date: 20051101
  Transmission Date: 20060501
  Serious: Yes (Hospitalization)
  Sender: FDA-Public Use
  Company Number: None

PATIENT
  Sex: Male

DRUGS (7)
  1. AGGRENOX [Suspect]
     Indication: TRANSIENT ISCHAEMIC ATTACK
     Dosage: 1 BID
     Dates: start: 20050901, end: 20050908
  2. CLOPIDOGREL BISULFATE [Concomitant]
  3. ASPIRIN 25MG/DIPYRIDAMOLE [Concomitant]
  4. FELODIPINE [Concomitant]
  5. FERROUS SULFATE TAB [Concomitant]
  6. FLUOROURACIL [Concomitant]
  7. HYDROCHLOROTHIAZIDE [Concomitant]

REACTIONS (3)
  - DIZZINESS [None]
  - GASTROINTESTINAL HAEMORRHAGE [None]
  - HAEMATOCHEZIA [None]
